FAERS Safety Report 22338019 (Version 2)
Quarter: 2023Q4

REPORT INFORMATION
  Report Type: Spontaneous
  Country: CN (occurrence: CN)
  Receive Date: 20230518
  Receipt Date: 20231006
  Transmission Date: 20240109
  Serious: Yes (Life-Threatening)
  Sender: FDA-Public Use
  Company Number: CN-BAYER-2023A069208

PATIENT
  Age: 70 Year
  Sex: Female
  Weight: 60 kg

DRUGS (2)
  1. ULTRAVIST [Suspect]
     Active Substance: IOPROMIDE
     Indication: Angiocardiogram
     Dosage: 370 MG, ONCE
     Route: 042
     Dates: start: 20230505, end: 20230505
  2. ULTRAVIST [Suspect]
     Active Substance: IOPROMIDE
     Indication: Abdominal pain upper

REACTIONS (6)
  - Dyspnoea [Recovered/Resolved]
  - Oxygen saturation decreased [Recovered/Resolved]
  - Blood pressure decreased [Recovered/Resolved]
  - Rash erythematous [Recovered/Resolved]
  - Face oedema [Recovered/Resolved]
  - Dysphonia [Recovered/Resolved]

NARRATIVE: CASE EVENT DATE: 20230505
